FAERS Safety Report 4981969-3 (Version None)
Quarter: 2006Q2

REPORT INFORMATION
  Report Type: 
  Country: None (occurrence: None)
  Receive Date: 20060424
  Receipt Date: 20060424
  Transmission Date: 20061013
  Serious: Yes (Other)
  Sender: FDA-Public Use
  Company Number: None

PATIENT
  Age: 47 Year
  Sex: Female
  Weight: 72.5755 kg

DRUGS (1)
  1. ZICAM NASAL GEL MATRIX [Suspect]
     Indication: NASOPHARYNGITIS
     Dosage: SPRAY IN EACH SIDE OF THE NOSE 3 X PER DAY NASAL
     Route: 045
     Dates: start: 20060413, end: 20060415

REACTIONS (4)
  - AGEUSIA [None]
  - ANOSMIA [None]
  - HYPOGEUSIA [None]
  - HYPOSMIA [None]
